FAERS Safety Report 6960845-0 (Version None)
Quarter: 2010Q3

REPORT INFORMATION
  Report Type: 
  Country: None (occurrence: None)
  Receive Date: 20100901
  Receipt Date: 20100820
  Transmission Date: 20110219
  Serious: Yes (Other)
  Sender: FDA-Public Use
  Company Number: US-WATSON-2010-11278

PATIENT
  Sex: Male
  Weight: 77.098 kg

DRUGS (5)
  1. PREDNISONE (WATSON LABORATORIES) [Suspect]
     Indication: RENAL FAILURE CHRONIC
     Dosage: 3 TABLETS, DAILY
     Route: 048
     Dates: start: 20091201, end: 20100701
  2. CELLCEPT [Concomitant]
     Indication: RENAL FAILURE CHRONIC
     Dosage: 4 TABLETS, DAILY
     Route: 048
     Dates: start: 20091201
  3. PERCOCET [Concomitant]
     Indication: PAIN
     Dosage: 2 TABLETS DAILY
     Route: 048
     Dates: start: 20091201
  4. BENICAR [Concomitant]
     Indication: HYPERTENSION
     Dosage: 1 TABLET, DAILY
     Route: 048
     Dates: start: 20100201
  5. LIPITOR [Concomitant]
     Indication: BLOOD CHOLESTEROL INCREASED
     Dosage: 1 TABLET, DAILY
     Route: 048
     Dates: start: 20100201

REACTIONS (3)
  - ACNE [None]
  - OSTEONECROSIS [None]
  - WEIGHT INCREASED [None]
